FAERS Safety Report 13818645 (Version 1)
Quarter: 2017Q3

REPORT INFORMATION
  Report Type: Spontaneous
  Country: ZA (occurrence: ZA)
  Receive Date: 20170731
  Receipt Date: 20170731
  Transmission Date: 20171127
  Serious: Yes (Death, Other)
  Sender: FDA-Public Use
  Company Number: ZA-MYLANLABS-2017M1044953

PATIENT

DRUGS (1)
  1. FUROSEMIDE MYLAN [Suspect]
     Active Substance: FUROSEMIDE
     Indication: DIURETIC THERAPY
     Dosage: 40 MG, UNK

REACTIONS (1)
  - Leukaemia [Fatal]
